FAERS Safety Report 15536305 (Version 2)
Quarter: 2018Q4

REPORT INFORMATION
  Report Type: Report from Study
  Country: US (occurrence: US)
  Receive Date: 20181022
  Receipt Date: 20181105
  Transmission Date: 20190205
  Serious: Yes (Hospitalization)
  Sender: FDA-Public Use
  Company Number: US-ROCHE-2200623

PATIENT
  Age: 56 Year
  Sex: Male
  Weight: 103.6 kg

DRUGS (2)
  1. AZITHROMYCIN ANHYDROUS. [Concomitant]
     Active Substance: AZITHROMYCIN ANHYDROUS
     Dosage: 14DAY COURSE
     Route: 065
  2. VEMURAFENIB. [Suspect]
     Active Substance: VEMURAFENIB
     Indication: HAIRY CELL LEUKAEMIA
     Dosage: CONTINUOUSLY IN CYCLES OF 4 WEEKS (AS PER PROTOCOL)
     Route: 048
     Dates: start: 20151210, end: 20180709

REACTIONS (2)
  - Pneumonia [Unknown]
  - Legionella test positive [Unknown]

NARRATIVE: CASE EVENT DATE: 20180626
